FAERS Safety Report 14585101 (Version 2)
Quarter: 2018Q1

REPORT INFORMATION
  Report Type: Report from Study
  Country: US (occurrence: US)
  Receive Date: 20180301
  Receipt Date: 20180307
  Transmission Date: 20180509
  Serious: Yes (Hospitalization, Other)
  Sender: FDA-Public Use
  Company Number: US-GILEAD-2018-0323697

PATIENT
  Age: 60 Year
  Sex: Female

DRUGS (17)
  1. AUGMENTIN [Concomitant]
     Active Substance: AMOXICILLIN\CLAVULANATE POTASSIUM
  2. LEVOTHYROXINE. [Concomitant]
     Active Substance: LEVOTHYROXINE
  3. ERGOCALCIFEROL. [Concomitant]
     Active Substance: ERGOCALCIFEROL
  4. DIGOXIN. [Concomitant]
     Active Substance: DIGOXIN
  5. FUROSEMIDE. [Concomitant]
     Active Substance: FUROSEMIDE
  6. PHENYTOIN. [Concomitant]
     Active Substance: PHENYTOIN
  7. SILDENAFIL. [Concomitant]
     Active Substance: SILDENAFIL
  8. LOSARTIN [Concomitant]
     Active Substance: LOSARTAN
  9. LACTULOSE. [Concomitant]
     Active Substance: LACTULOSE
  10. OMEPRAZOLE. [Concomitant]
     Active Substance: OMEPRAZOLE
  11. OCEAN NASAL [Concomitant]
  12. CALCIUM WITH VITAMIN D             /00944201/ [Concomitant]
     Active Substance: CALCIUM CARBONATE\CHOLECALCIFEROL
  13. ATROVENT [Concomitant]
     Active Substance: IPRATROPIUM BROMIDE
  14. AMBRISENTAN [Suspect]
     Active Substance: AMBRISENTAN
     Indication: PULMONARY ARTERIAL HYPERTENSION
     Dosage: 10 MG, QD
     Route: 048
     Dates: start: 201407
  15. K-TAB [Concomitant]
     Active Substance: POTASSIUM CHLORIDE
  16. ATORVASTATIN [Concomitant]
     Active Substance: ATORVASTATIN
  17. URSODIOL. [Concomitant]
     Active Substance: URSODIOL

REACTIONS (8)
  - Unevaluable event [Unknown]
  - Diarrhoea [Unknown]
  - Headache [Unknown]
  - Cough [Unknown]
  - Pain [Unknown]
  - Cardiac failure congestive [Unknown]
  - Pulmonary hypertension [Unknown]
  - Ear congestion [Unknown]
